FAERS Safety Report 25251818 (Version 7)
Quarter: 2025Q3

REPORT INFORMATION
  Report Type: Spontaneous
  Country: US (occurrence: US)
  Receive Date: 20250429
  Receipt Date: 20250908
  Transmission Date: 20251020
  Serious: No
  Sender: PFIZER
  Company Number: US-PFIZER INC-202500087989

PATIENT
  Age: 13 Year
  Sex: Male

DRUGS (3)
  1. GENOTROPIN [Suspect]
     Active Substance: SOMATROPIN
     Indication: Hypopituitarism
     Dosage: 1.2 MG, DAILY
  2. GENOTROPIN [Suspect]
     Active Substance: SOMATROPIN
     Indication: Growth hormone deficiency
     Dosage: ALTERNATE 2 MG + 2.2 MG, EVERY OTHER DAY (DAILY DOSE: 2.1 MG/DAY, 7 DAYS/WEEK)
  3. GENOTROPIN [Suspect]
     Active Substance: SOMATROPIN
     Dosage: ALTERNATE 2 MG + 2.2 MG, EVERY OTHER DAY (DAILY DOSE: 2.1 MG/DAY, 7 DAYS/WEEK)

REACTIONS (4)
  - Headache [Unknown]
  - Drug dose omission by device [Unknown]
  - Device information output issue [Unknown]
  - Device deployment issue [Unknown]
